FAERS Safety Report 9555847 (Version 1)
Quarter: 2013Q3

REPORT INFORMATION
  Report Type: Spontaneous
  Country: US (occurrence: None)
  Receive Date: 20130816
  Receipt Date: 20130816
  Transmission Date: 20140515
  Serious: Yes (Other)
  Sender: FDA-Public Use
  Company Number: 2013AP004441

PATIENT
  Age: 84 Year
  Sex: Male

DRUGS (9)
  1. RISPERIDONE [Suspect]
     Indication: DEPRESSION
  2. CARBIDOPA AND LEVODOPA SUSTAINED-RELEASE TABLETS [Concomitant]
     Indication: PARKINSON^S DISEASE
  3. SERTRALINE [Concomitant]
  4. LAMOTRIGINE [Concomitant]
  5. HYDROCHLOROTHIAZIDE [Concomitant]
  6. LISINOPRIL [Concomitant]
  7. IPRATROPIUM BROMIDE [Concomitant]
  8. FLUTICASONE PROPIONATE [Concomitant]
  9. ATORVASTATIN [Concomitant]

REACTIONS (3)
  - Parkinsonism [None]
  - Fatigue [None]
  - Somnolence [None]
